FAERS Safety Report 5069507-0 (Version None)
Quarter: 2006Q3

REPORT INFORMATION
  Report Type: 
  Country: None (occurrence: None)
  Receive Date: 20060803
  Receipt Date: 20060427
  Transmission Date: 20061208
  Serious: Yes (Other)
  Sender: FDA-Public Use
  Company Number: FR-AVENTIS-200611627FR

PATIENT
  Age: 58 Year
  Sex: Male
  Weight: 87 kg

DRUGS (7)
  1. AMARYL [Suspect]
     Indication: DIABETES MELLITUS NON-INSULIN-DEPENDENT
     Route: 048
     Dates: start: 20051101, end: 20060301
  2. GLUCOPHAGE [Concomitant]
     Indication: DIABETES MELLITUS NON-INSULIN-DEPENDENT
  3. AUGMENTIN '125' [Concomitant]
  4. MORPHINE SULFATE [Concomitant]
  5. COZAAR [Concomitant]
  6. AMLODIPINE BESYLATE [Concomitant]
  7. EFFEXOR [Concomitant]

REACTIONS (2)
  - PSEUDOLYMPHOMA [None]
  - RASH [None]
